FAERS Safety Report 6979390-1 (Version None)
Quarter: 2010Q3

REPORT INFORMATION
  Report Type: 
  Country: None (occurrence: None)
  Receive Date: 20100913
  Receipt Date: 20100909
  Transmission Date: 20110219
  Serious: Yes (Death)
  Sender: FDA-Public Use
  Company Number: US-MILLENNIUM PHARMACEUTICALS, INC.-2010-04756

PATIENT

DRUGS (8)
  1. VELCADE [Suspect]
     Indication: LYMPHOMA
     Dosage: 0.7 MG/M2, CYCLIC
  2. RITUXIMAB [Suspect]
     Indication: LYMPHOMA
     Dosage: 375 MG/M2, CYCLIC
  3. CYCLOPHOSPHAMIDE [Suspect]
     Indication: LYMPHOMA
     Dosage: 750 MG/M2, CYCLIC
     Route: 042
  4. DOXORUBICIN HCL [Suspect]
     Indication: LYMPHOMA
     Dosage: 50 MG/M2, CYCLIC
     Route: 042
  5. VINCRISTINE [Suspect]
     Indication: LYMPHOMA
     Dosage: 1.4 MG/M2, CYCLIC
     Route: 042
  6. PREDNISONE [Suspect]
     Indication: LYMPHOMA
     Dosage: 100 MG, CYCLIC
     Route: 048
  7. ACETAMINOPHEN [Concomitant]
     Indication: PREMEDICATION
  8. DIPHENHYDRAMINE HCL [Concomitant]
     Indication: PREMEDICATION

REACTIONS (1)
  - DEATH [None]
